FAERS Safety Report 9296108 (Version 3)
Quarter: 2014Q1

REPORT INFORMATION
  Report Type: Spontaneous
  Country: GB (occurrence: None)
  Receive Date: 20130514
  Receipt Date: 20140311
  Transmission Date: 20141002
  Serious: Yes (Hospitalization)
  Sender: FDA-Public Use
  Company Number: AUR-APL-2013-03750

PATIENT
  Age: 49 Year
  Sex: Female

DRUGS (12)
  1. BISOPROLOL [Suspect]
     Indication: PRODUCT USED FOR UNKNOWN INDICATION
     Route: 048
     Dates: end: 20140206
  2. CLOPIDOGREL [Suspect]
     Indication: PRODUCT USED FOR UNKNOWN INDICATION
     Route: 048
     Dates: end: 20140206
  3. FLUOXETINE [Suspect]
     Indication: PRODUCT USED FOR UNKNOWN INDICATION
     Route: 048
     Dates: start: 20130124
  4. FUROSEMIDE [Suspect]
     Indication: PRODUCT USED FOR UNKNOWN INDICATION
     Route: 048
     Dates: start: 20130124, end: 20130124
  5. IBUPROFEN [Suspect]
     Indication: PRODUCT USED FOR UNKNOWN INDICATION
     Route: 048
  6. PARACETAMOL [Suspect]
     Indication: PRODUCT USED FOR UNKNOWN INDICATION
     Route: 048
     Dates: end: 20140206
  7. RAMIPRIL [Suspect]
     Indication: PRODUCT USED FOR UNKNOWN INDICATION
     Route: 048
     Dates: end: 20140206
  8. ASPIRIN [Suspect]
     Indication: PRODUCT USED FOR UNKNOWN INDICATION
     Route: 048
     Dates: start: 20130124
  9. OLANZAPINE (OLANZAPINE) [Suspect]
     Indication: PRODUCT USED FOR UNKNOWN INDICATION
     Route: 048
     Dates: end: 20140206
  10. ZAPONEX [Suspect]
     Indication: SCHIZOPHRENIA
     Route: 048
     Dates: start: 20041014, end: 20130129
  11. GAVISCON (GAVISCON/00237601/) [Concomitant]
  12. LANSOPRAZOLE (LANSOPRAZOLE) [Concomitant]

REACTIONS (15)
  - Agitation [None]
  - Faecal incontinence [None]
  - Dysarthria [None]
  - Confusional state [None]
  - Overdose [None]
  - Alanine aminotransferase increased [None]
  - Self-medication [None]
  - Coma scale abnormal [None]
  - Renal failure acute [None]
  - Dehydration [None]
  - Blood cholesterol increased [None]
  - Hypercholesterolaemia [None]
  - Intentional overdose [None]
  - Treatment noncompliance [None]
  - Impulsive behaviour [None]
